FAERS Safety Report 7402409-0 (Version None)
Quarter: 2011Q2

REPORT INFORMATION
  Report Type: 
  Country: None (occurrence: None)
  Receive Date: 20110408
  Receipt Date: 20110328
  Transmission Date: 20111010
  Serious: Yes (Hospitalization, Other)
  Sender: FDA-Public Use
  Company Number: JP-BRISTOL-MYERS SQUIBB COMPANY-15492010

PATIENT
  Age: 70 Year
  Sex: Male
  Weight: 60 kg

DRUGS (17)
  1. DIFLUPREDNATE [Concomitant]
     Route: 061
     Dates: start: 20101126
  2. HYDROXYZINE [Concomitant]
     Route: 048
     Dates: start: 20101209
  3. ALPRAZOLAM [Concomitant]
     Route: 048
     Dates: start: 20101210
  4. DEXAMETHASONE [Concomitant]
     Route: 048
     Dates: start: 20101221
  5. ZOLPIDEM TARTRATE [Concomitant]
     Route: 048
     Dates: start: 20101115, end: 20101118
  6. SENNOSIDE [Concomitant]
     Route: 048
     Dates: start: 20101118, end: 20101118
  7. CISPLATIN [Suspect]
     Indication: GASTROOESOPHAGEAL CANCER
     Dosage: MOST RECENT INF:04JAN11 ON DAY 1 OF CYCLE
     Route: 042
     Dates: start: 20101116
  8. FERROUS FUMARATE [Concomitant]
     Route: 048
     Dates: start: 20101124
  9. LORMETAZEPAM [Concomitant]
     Route: 048
     Dates: start: 20101119
  10. CHLORPROMAZINE [Concomitant]
     Route: 048
     Dates: start: 20101118, end: 20101119
  11. XELODA [Suspect]
     Indication: GASTROOESOPHAGEAL CANCER
     Dosage: MG/M2 MOST RECENT 11JAN2011
     Route: 048
     Dates: start: 20101116
  12. CETUXIMAB [Suspect]
     Indication: GASTROOESOPHAGEAL CANCER
     Dosage: CETUXIMAB 5MG/ML;MOST RECENT INF:04JAN11 NO OF INF:8
     Route: 042
     Dates: start: 20101116
  13. HYDROCORTISONE BUTYRATE [Concomitant]
     Route: 061
     Dates: start: 20101126
  14. DOMPERIDONE [Concomitant]
     Route: 048
     Dates: start: 20101117, end: 20101121
  15. HEPARIN [Concomitant]
     Indication: PROPHYLAXIS
     Dosage: 16NOV10-28NOV10 (12DAYS),28NOV10-ONG LOTION,21DEC-ONG OINTMENT
     Route: 061
     Dates: start: 20101116
  16. POLAPREZINC [Concomitant]
     Route: 048
     Dates: start: 20101026, end: 20101125
  17. LANSOPRAZOLE [Concomitant]
     Route: 048
     Dates: start: 20101124

REACTIONS (1)
  - ELECTROCARDIOGRAM QT PROLONGED [None]
